FAERS Safety Report 25249946 (Version 1)
Quarter: 2025Q2

REPORT INFORMATION
  Report Type: Spontaneous
  Country: US (occurrence: US)
  Receive Date: 20250429
  Receipt Date: 20250429
  Transmission Date: 20250717
  Serious: Yes (Death, Other)
  Sender: Steriscience PTE
  Company Number: US-STERISCIENCE B.V.-2025-ST-000836

PATIENT
  Age: 44 Year
  Sex: Female

DRUGS (3)
  1. MEROPENEM [Suspect]
     Active Substance: MEROPENEM
     Indication: Bacterial infection
     Route: 065
  2. ORITAVANCIN [Suspect]
     Active Substance: ORITAVANCIN
     Indication: Bacterial infection
     Route: 065
  3. CEFTAROLINE [Suspect]
     Active Substance: CEFTAROLINE
     Indication: Bacterial infection
     Route: 065

REACTIONS (4)
  - Bronchopulmonary aspergillosis [Fatal]
  - Systemic candida [Fatal]
  - Acute myeloid leukaemia [Fatal]
  - Drug ineffective [Fatal]
